FAERS Safety Report 7402441-7 (Version None)
Quarter: 2011Q2

REPORT INFORMATION
  Report Type: 
  Country: None (occurrence: None)
  Receive Date: 20110408
  Receipt Date: 20110325
  Transmission Date: 20111010
  Serious: Yes (Other)
  Sender: FDA-Public Use
  Company Number: GB-JNJFOC-20101202249

PATIENT
  Sex: Female
  Weight: 76 kg

DRUGS (4)
  1. REMICADE [Suspect]
     Indication: CROHN'S DISEASE
     Route: 042
  2. TRAMADOL [Concomitant]
  3. KENALOG [Concomitant]
     Route: 030
  4. HORMONE  REPLACEMENT THERAPY (NOS) [Concomitant]

REACTIONS (1)
  - BREAST CANCER [None]
